FAERS Safety Report 4289729-6 (Version None)
Quarter: 2004Q1

REPORT INFORMATION
  Report Type: 
  Country: None (occurrence: None)
  Receive Date: 20040122
  Receipt Date: 20031218
  Transmission Date: 20041129
  Serious: Yes (Other)
  Sender: FDA-Public Use
  Company Number: 2003125938

PATIENT
  Sex: Female
  Weight: 58.9676 kg

DRUGS (1)
  1. RELPAX [Suspect]
     Indication: MIGRAINE
     Dosage: 40 MG, ORAL
     Route: 048
     Dates: end: 20030101

REACTIONS (4)
  - AKINESIA [None]
  - COMMUNICATION DISORDER [None]
  - MIGRAINE [None]
  - PARALYSIS [None]
